FAERS Safety Report 17424133 (Version 2)
Quarter: 2020Q1

REPORT INFORMATION
  Report Type: Spontaneous
  Country: FR (occurrence: FR)
  Receive Date: 20200217
  Receipt Date: 20200218
  Transmission Date: 20200409
  Serious: Yes (Life-Threatening, Other)
  Sender: FDA-Public Use
  Company Number: FR-ORION CORPORATION ORION PHARMA-20_00008438

PATIENT
  Age: 73 Year
  Sex: Female

DRUGS (8)
  1. SPECIAFOLDINE [Concomitant]
     Active Substance: FOLIC ACID
     Indication: SARCOIDOSIS
     Dosage: STRENGTH: 5 MG
     Route: 048
     Dates: start: 201901
  2. KEPPRA [Concomitant]
     Active Substance: LEVETIRACETAM
     Dosage: STRENGTH: 250 MG
     Route: 048
  3. METHOTREXATE (TRADE NAME UNKNOWN) [Suspect]
     Active Substance: METHOTREXATE
     Indication: SARCOIDOSIS
     Route: 048
     Dates: start: 201901, end: 201911
  4. FUROSEMIDE. [Concomitant]
     Active Substance: FUROSEMIDE
     Route: 048
  5. ESOMEPRAZOLE. [Concomitant]
     Active Substance: ESOMEPRAZOLE MAGNESIUM
     Route: 048
     Dates: end: 20191206
  6. TARDYFERON [Concomitant]
     Active Substance: FERROUS SULFATE
     Route: 048
     Dates: end: 201911
  7. CORTANCYL [Interacting]
     Active Substance: PREDNISONE
     Indication: SARCOIDOSIS
     Route: 048
     Dates: end: 20191206
  8. LEVOTHYROX [Concomitant]
     Active Substance: LEVOTHYROXINE
     Indication: AUTOIMMUNE THYROIDITIS
     Dosage: STRENGTH:  175 MICROGRAMS
     Route: 048

REACTIONS (3)
  - Product use in unapproved indication [Unknown]
  - Pneumocystis jirovecii pneumonia [Recovering/Resolving]
  - Drug interaction [Unknown]

NARRATIVE: CASE EVENT DATE: 20191126
